FAERS Safety Report 7842460-X (Version None)
Quarter: 2011Q4

REPORT INFORMATION
  Report Type: 
  Country: None (occurrence: None)
  Receive Date: 20111025
  Receipt Date: 20111019
  Transmission Date: 20120403
  Serious: Yes (Life-Threatening)
  Sender: FDA-Public Use
  Company Number: PHEH2011US07406

PATIENT
  Sex: Female

DRUGS (11)
  1. RECLAST [Suspect]
     Dosage: 5 MG, PER 100 ML, ONCE A YEAR
     Route: 042
     Dates: start: 20110831
  2. EMBRAN [Concomitant]
  3. PREMARIN [Concomitant]
  4. BENADRYL [Concomitant]
  5. FUROSEMIDE [Concomitant]
  6. LYRICA [Concomitant]
  7. NASAL SPRAY [Concomitant]
  8. FLUOXETINE [Concomitant]
  9. TRAMADOL HCL [Concomitant]
  10. CALCIUM MAGNESIUM ZINC [Concomitant]
  11. OLOPATADINE HYDROCHLORIDE [Concomitant]

REACTIONS (10)
  - ARTHRALGIA [None]
  - HEADACHE [None]
  - CHILLS [None]
  - VOMITING [None]
  - MOBILITY DECREASED [None]
  - INFLUENZA [None]
  - FEELING ABNORMAL [None]
  - MALAISE [None]
  - DIARRHOEA [None]
  - DYSKINESIA [None]
